FAERS Safety Report 8287265-3 (Version None)
Quarter: 2012Q2

REPORT INFORMATION
  Report Type: 
  Country: None (occurrence: None)
  Receive Date: 20120416
  Receipt Date: 20120416
  Transmission Date: 20120825
  Serious: Yes (Life-Threatening, Hospitalization, Disabling, Other)
  Sender: FDA-Public Use
  Company Number: None

PATIENT
  Age: 31 Year
  Sex: Female
  Weight: 54.431 kg

DRUGS (1)
  1. CHANTIX [Suspect]
     Indication: SMOKING CESSATION THERAPY
     Dosage: 1.0 MG
     Route: 048
     Dates: start: 20120216, end: 20120307

REACTIONS (4)
  - ANXIETY [None]
  - LOSS OF EMPLOYMENT [None]
  - MANIA [None]
  - AFFECTIVE DISORDER [None]
